FAERS Safety Report 5897819-7 (Version None)
Quarter: 2008Q3

REPORT INFORMATION
  Report Type: 
  Country: None (occurrence: None)
  Receive Date: 20080923
  Receipt Date: 20080919
  Transmission Date: 20090109
  Serious: Yes (Death)
  Sender: FDA-Public Use
  Company Number: 2008JP003863

PATIENT
  Age: 68 Year
  Sex: Female
  Weight: 48 kg

DRUGS (17)
  1. FUNGUARD       (MICAFUNGIN) [Suspect]
     Indication: SEPSIS
     Dosage: 50 MG, UID/QD, IV DRIP
     Route: 041
     Dates: start: 20080815, end: 20080818
  2. VANCOMYCIN HYDROCHLORIDE [Concomitant]
  3. MEROPEN (MEROPENEM) INJECTION [Concomitant]
  4. NORADRENALINE (NOREPINEPHRINE) FORMULATION UNKNOWN [Concomitant]
  5. KAKODIN-D (DOPAMINE HYDROCHLORIDE) FORMULATION UNKNOWN [Concomitant]
  6. DOBUTREX (DOBUTAMINE HYDROCHLORIDE) FORMULATION UNKNOWN [Concomitant]
  7. MILRILA (MILRINONE) FORMULATION UNKNOWN [Concomitant]
  8. FLUCONAZOLE (FLUCONAZOLE) FORMULATION UNKNOWN [Concomitant]
  9. HICALIQ RF (GLUCOSE, CALCIUM GLUCONATE, POTASSIUM PHOSPHATE DIBASIC, M [Concomitant]
  10. KIDMIN (GLUTAMIC ACID, ASPARTIC ACID, PROLINE, ISOLEUCINE, TRYPTOPHAN, [Concomitant]
  11. PANTOL (PANTHENOL) FORMULATION UNKNOWN [Concomitant]
  12. PROSTARMON F      (DINOPROST) INJECTION [Concomitant]
  13. KCL           (POTASSIUM CHLORIDE) FORMULATION UNKNOWN [Concomitant]
  14. MINERALIN           (COPPER SULFATE) FORMULATION UNKNOWN [Concomitant]
  15. MVI 3         (BIOTIN, FOLIC ACID) FORMULATION UNKNOWN [Concomitant]
  16. NEO MVI-9 FORMULATION UNKNOWN [Concomitant]
  17. FUTHAN (NAFAMOSTAT MESILATE) FORMULATION  UNKNOWN [Concomitant]

REACTIONS (8)
  - ACUTE RESPIRATORY DISTRESS SYNDROME [None]
  - BLOOD PRESSURE DECREASED [None]
  - BONE MARROW FAILURE [None]
  - CONDITION AGGRAVATED [None]
  - PNEUMONIA [None]
  - RENAL FAILURE ACUTE [None]
  - SEPTIC SHOCK [None]
  - WHITE BLOOD CELL COUNT DECREASED [None]
